FAERS Safety Report 21934723 (Version 2)
Quarter: 2023Q1

REPORT INFORMATION
  Report Type: Report from Study
  Country: FR (occurrence: FR)
  Receive Date: 20230201
  Receipt Date: 20230306
  Transmission Date: 20230418
  Serious: Yes (Other)
  Sender: FDA-Public Use
  Company Number: FR-002147023-NVSC2023FR017013

PATIENT
  Sex: Male
  Weight: 75 kg

DRUGS (1)
  1. PLUVICTO [Suspect]
     Active Substance: LUTETIUM LU-177 VIPIVOTIDE TETRAXETAN
     Indication: Prostate cancer
     Dosage: 7156 MBQ, ONCE (CYCLE 1)
     Route: 042
     Dates: start: 20221201, end: 20221201

REACTIONS (5)
  - Hyperleukocytosis [Not Recovered/Not Resolved]
  - Granulocytosis [Not Recovered/Not Resolved]
  - Prostate cancer [Unknown]
  - Malignant neoplasm progression [Unknown]
  - Haemoglobin decreased [Unknown]

NARRATIVE: CASE EVENT DATE: 20221206
